FAERS Safety Report 16097039 (Version 2)
Quarter: 2019Q2

REPORT INFORMATION
  Report Type: Report from Study
  Country: US (occurrence: US)
  Receive Date: 20190320
  Receipt Date: 20190401
  Transmission Date: 20190711
  Serious: Yes (Death, Other)
  Sender: FDA-Public Use
  Company Number: US-GILEAD-2019-0397653

PATIENT
  Age: 78 Year
  Sex: Male

DRUGS (2)
  1. TADALAFIL. [Concomitant]
     Active Substance: TADALAFIL
  2. AMBRISENTAN [Suspect]
     Active Substance: AMBRISENTAN
     Indication: PRODUCT USED FOR UNKNOWN INDICATION
     Dosage: 5 MG, QD
     Route: 065
     Dates: start: 20190220

REACTIONS (1)
  - Postoperative respiratory failure [Fatal]
